FAERS Safety Report 15490901 (Version 2)
Quarter: 2018Q4

REPORT INFORMATION
  Report Type: Report from Study
  Country: None (occurrence: US)
  Receive Date: 20181012
  Receipt Date: 20181026
  Transmission Date: 20190205
  Serious: Yes (Hospitalization)
  Sender: FDA-Public Use
  Company Number: US-ABBVIE-18K-163-2235274-00

PATIENT
  Age: 56 Year
  Sex: Female
  Weight: 65.83 kg

DRUGS (12)
  1. HUMIRA [Suspect]
     Active Substance: ADALIMUMAB
     Route: 058
     Dates: start: 2018
  2. METFORMIN [Concomitant]
     Active Substance: METFORMIN HYDROCHLORIDE
     Indication: TYPE 1 DIABETES MELLITUS
  3. ASACOL [Concomitant]
     Active Substance: MESALAMINE
     Indication: PRODUCT USED FOR UNKNOWN INDICATION
  4. GLIPIZIDE. [Concomitant]
     Active Substance: GLIPIZIDE
     Indication: DIABETES MELLITUS
  5. HUMIRA [Suspect]
     Active Substance: ADALIMUMAB
     Indication: CROHN^S DISEASE
     Dosage: LOADING DOSE
     Route: 058
     Dates: start: 20160210, end: 20160210
  6. LISINOPRIL. [Concomitant]
     Active Substance: LISINOPRIL
     Indication: HYPERTENSION
  7. AMLODIPINE BESYLATE. [Concomitant]
     Active Substance: AMLODIPINE BESYLATE
     Indication: HYPERTENSION
  8. HUMIRA [Suspect]
     Active Substance: ADALIMUMAB
     Dosage: LOADING DOSE
     Route: 058
     Dates: start: 20160225, end: 20160225
  9. OXYCODONE AND ACETAMINOPHEN [Concomitant]
     Active Substance: ACETAMINOPHEN\OXYCODONE HYDROCHLORIDE
     Indication: PAIN
     Dosage: 10-325
  10. HUMIRA [Suspect]
     Active Substance: ADALIMUMAB
     Route: 058
     Dates: start: 20180317, end: 2018
  11. ATORVASTATIN [Concomitant]
     Active Substance: ATORVASTATIN
     Indication: BLOOD CHOLESTEROL
  12. HUMIRA [Suspect]
     Active Substance: ADALIMUMAB
     Route: 058
     Dates: start: 201602, end: 20180317

REACTIONS (24)
  - Vomiting [Recovered/Resolved]
  - Defaecation urgency [Recovering/Resolving]
  - Haemorrhoidal haemorrhage [Recovered/Resolved]
  - Pain in extremity [Unknown]
  - Neuralgia [Unknown]
  - Injection site discomfort [Unknown]
  - Cough [Unknown]
  - Muscular weakness [Unknown]
  - Hypersensitivity [Unknown]
  - Frequent bowel movements [Recovering/Resolving]
  - Abdominal distension [Unknown]
  - Ulcer [Unknown]
  - Wrong technique in product usage process [Unknown]
  - Fall [Unknown]
  - Arthralgia [Unknown]
  - Crohn^s disease [Recovering/Resolving]
  - Cartilage atrophy [Unknown]
  - Type 2 diabetes mellitus [Recovering/Resolving]
  - Back pain [Unknown]
  - Tooth injury [Unknown]
  - Decreased appetite [Unknown]
  - Arthritis [Unknown]
  - Vomiting [Recovered/Resolved]
  - Hypertension [Unknown]

NARRATIVE: CASE EVENT DATE: 201703
